FAERS Safety Report 7385071-5 (Version None)
Quarter: 2011Q1

REPORT INFORMATION
  Report Type: 
  Country: None (occurrence: None)
  Receive Date: 20110330
  Receipt Date: 20110325
  Transmission Date: 20110831
  Serious: Yes (Hospitalization, Other)
  Sender: FDA-Public Use
  Company Number: US-CEPHALON-2011000493

PATIENT
  Sex: Male

DRUGS (11)
  1. FRAGMIN [Concomitant]
  2. LORTAB [Concomitant]
  3. METOPROLOL TARTRATE [Concomitant]
  4. CLOBETASOL PROPIONATE [Concomitant]
  5. MORPHINE [Concomitant]
  6. TREANDA [Suspect]
     Indication: CHRONIC LYMPHOCYTIC LEUKAEMIA
     Route: 042
     Dates: start: 20110118
  7. NEXIUM [Concomitant]
  8. TRAMADOL [Concomitant]
  9. BENADRYL [Concomitant]
  10. RITUXAN [Concomitant]
     Indication: CHRONIC LYMPHOCYTIC LEUKAEMIA
     Dates: start: 20110118
  11. NIFEDIPINE [Concomitant]

REACTIONS (10)
  - HYPOKALAEMIA [None]
  - SQUAMOUS CELL CARCINOMA [None]
  - HYPONATRAEMIA [None]
  - RASH [None]
  - THROMBOCYTOPENIA [None]
  - CEREBROVASCULAR ACCIDENT [None]
  - DEHYDRATION [None]
  - NEUTROPENIA [None]
  - DYSPNOEA [None]
  - PNEUMONIA [None]
